FAERS Safety Report 21486085 (Version 3)
Quarter: 2022Q4

REPORT INFORMATION
  Report Type: Spontaneous
  Country: US (occurrence: US)
  Receive Date: 20221020
  Receipt Date: 20221114
  Transmission Date: 20230113
  Serious: No
  Sender: FDA-Public Use
  Company Number: US-PFIZER INC-202201190435

PATIENT
  Age: 32 Year
  Sex: Male

DRUGS (1)
  1. GENOTROPIN [Suspect]
     Active Substance: SOMATROPIN
     Indication: Blood growth hormone abnormal
     Dosage: 0.1 MG, DAILY
     Route: 058
     Dates: end: 20220924

REACTIONS (3)
  - Expired device used [Unknown]
  - Poor quality device used [Unknown]
  - Drug dose omission by device [Not Recovered/Not Resolved]

NARRATIVE: CASE EVENT DATE: 20220924
